FAERS Safety Report 23319891 (Version 1)
Quarter: 2023Q4

REPORT INFORMATION
  Report Type: Spontaneous
  Country: US (occurrence: US)
  Receive Date: 20231220
  Receipt Date: 20231220
  Transmission Date: 20240110
  Serious: No
  Sender: FDA-Public Use
  Company Number: US-SANOFI-01878354

PATIENT
  Age: 47 Year
  Sex: Female

DRUGS (1)
  1. THYROGEN [Suspect]
     Active Substance: THYROTROPIN ALFA
     Dosage: HAS TO BE ADMINISTERED 3 CONSECUTIVE INJECTIONS ONCE EACH DAY

REACTIONS (1)
  - Product prescribing issue [Unknown]
